FAERS Safety Report 8632044 (Version 2)
Quarter: 2013Q1

REPORT INFORMATION
  Report Type: Spontaneous
  Country: BR (occurrence: BR)
  Receive Date: 20120625
  Receipt Date: 20130128
  Transmission Date: 20140127
  Serious: Yes (Disabling, Other)
  Sender: FDA-Public Use
  Company Number: PHHY2012BR052332

PATIENT
  Sex: Female

DRUGS (2)
  1. EXELON PATCH [Suspect]
     Dosage: 4.6 MG, DAILY
     Route: 062
  2. EXELON PATCH [Suspect]
     Dosage: 4.6 MG, DAILY
     Route: 062

REACTIONS (3)
  - Cerebrovascular accident [Recovering/Resolving]
  - Paralysis [Recovering/Resolving]
  - Hemiplegia [Recovering/Resolving]
